FAERS Safety Report 6065679-X (Version None)
Quarter: 2009Q1

REPORT INFORMATION
  Report Type: 
  Country: None (occurrence: None)
  Receive Date: 20090130
  Receipt Date: 20090114
  Transmission Date: 20090719
  Serious: Yes (Other)
  Sender: FDA-Public Use
  Company Number: 8037213

PATIENT
  Age: 7 Year
  Sex: Male
  Weight: 42 kg

DRUGS (1)
  1. METHYLPHENIDATE HCL [Suspect]
     Indication: DISTURBANCE IN SOCIAL BEHAVIOUR
     Dosage: 20 MG/D PO
     Route: 048
     Dates: start: 20080226, end: 20080429

REACTIONS (2)
  - HEPATITIS [None]
  - LEUKOCYTOSIS [None]
